FAERS Safety Report 9324994 (Version 4)
Quarter: 2013Q3

REPORT INFORMATION
  Report Type: Spontaneous
  Country: JP (occurrence: JP)
  Receive Date: 20130603
  Receipt Date: 20130909
  Transmission Date: 20140515
  Serious: Yes (Death, Other)
  Sender: FDA-Public Use
  Company Number: JP-B.I. PHARMACEUTICALS,INC./RIDGEFIELD-2013-BI-15617YA

PATIENT
  Age: 86 Year
  Sex: Male

DRUGS (10)
  1. HARNAL (TAMSULOSIN) ORODISPERSABLE CR [Suspect]
     Indication: BENIGN PROSTATIC HYPERPLASIA
     Dosage: 0.2 MG
     Route: 048
     Dates: start: 20120622
  2. HARNAL (TAMSULOSIN) ORODISPERSABLE CR [Suspect]
     Indication: DYSURIA
  3. FAMOTIDINE (FAMOTIDINE) ORODISPERSIBLE CR TABLET [Concomitant]
  4. PLETAAL (CILOSTAZOL) ORODISPERSIBLE CR TABLET [Concomitant]
  5. MEMARY (MEMANTINE HYDROCHLORIDE) TABLET [Concomitant]
  6. AMLODIN (AMLODIPINE BESILATE) ORODISPERSIBLE CR TABLET [Concomitant]
  7. DIART (AZOSEMIDE) TABLET [Concomitant]
  8. SELARA (EPLERENONE) TABLET [Concomitant]
  9. CLARITHROMYCIN (CLARITHROMYCIN) PER ORAL NOS [Concomitant]
     Route: 048
  10. FLOMOX (CEFCAPENE PIVOXIL HYDROCHLORIDE) TABLET [Concomitant]

REACTIONS (3)
  - Dementia Alzheimer^s type [Fatal]
  - Marasmus [Fatal]
  - Dysphagia [Not Recovered/Not Resolved]
